FAERS Safety Report 12873763 (Version 2)
Quarter: 2016Q4

REPORT INFORMATION
  Report Type: Report from Study
  Country: CO (occurrence: CO)
  Receive Date: 20161021
  Receipt Date: 20161101
  Transmission Date: 20170207
  Serious: Yes (Hospitalization)
  Sender: FDA-Public Use
  Company Number: CO-JNJFOC-20160904609

PATIENT
  Age: 48 Year
  Sex: Male
  Weight: 70 kg

DRUGS (7)
  1. RISPERDAL CONSTA [Suspect]
     Active Substance: RISPERIDONE
     Indication: BIPOLAR DISORDER
     Route: 030
     Dates: start: 20160805
  2. LITHIUM CARBONATE. [Concomitant]
     Active Substance: LITHIUM CARBONATE
     Route: 048
  3. CLONAZEPAM. [Concomitant]
     Active Substance: CLONAZEPAM
     Dosage: 0-0-8
     Route: 065
  4. RISPERIDONE. [Concomitant]
     Active Substance: RISPERIDONE
     Dosage: 1-1 / 2- 1
     Route: 048
  5. VALPROIC ACID. [Concomitant]
     Active Substance: VALPROIC ACID
     Dosage: 2-0-2, 1-0-1
     Route: 048
  6. LACOSAMIDE. [Concomitant]
     Active Substance: LACOSAMIDE
     Route: 065
  7. LEVETIRACETAM. [Concomitant]
     Active Substance: LEVETIRACETAM
     Route: 048

REACTIONS (7)
  - Anxiety [Recovering/Resolving]
  - Presyncope [Unknown]
  - Depression [Recovered/Resolved]
  - Psychomotor hyperactivity [Recovering/Resolving]
  - Insomnia [Recovering/Resolving]
  - Restlessness [Recovered/Resolved]
  - Drug ineffective [Unknown]

NARRATIVE: CASE EVENT DATE: 2016
